FAERS Safety Report 7362585-5 (Version None)
Quarter: 2011Q1

REPORT INFORMATION
  Report Type: 
  Country: None (occurrence: None)
  Receive Date: 20110320
  Receipt Date: 20100909
  Transmission Date: 20110831
  Serious: Yes (Hospitalization, Other)
  Sender: FDA-Public Use
  Company Number: US-BAYER-201013737NA

PATIENT
  Sex: Female
  Weight: 118 kg

DRUGS (10)
  1. YASMIN [Suspect]
     Indication: PRODUCT USED FOR UNKNOWN INDICATION
     Route: 048
     Dates: start: 20050801, end: 20080901
  2. MORPHINE [Concomitant]
     Indication: PAIN
     Dosage: UNK
     Dates: start: 20080211
  3. ASPIRIN [Concomitant]
     Dosage: UNK UNK, PRN
  4. DILAUDID [Concomitant]
     Dosage: UNK
     Dates: start: 20080211
  5. ZOFRAN [Concomitant]
     Dosage: UNK
     Dates: start: 20080211
  6. VICODIN [Concomitant]
     Dosage: UNK
     Dates: start: 20080211
  7. LOESTRIN 1.5/30 [Concomitant]
     Dates: start: 20100101
  8. LEVAQUIN [Concomitant]
     Indication: URINARY TRACT INFECTION
     Dosage: UNK
     Dates: start: 20080824
  9. NORA-BE [Concomitant]
     Indication: CONTRACEPTION
     Dates: start: 20090615, end: 20090901
  10. OMEPRAZOLE [Concomitant]

REACTIONS (11)
  - CHOLELITHIASIS [None]
  - JAUNDICE [None]
  - CHOLECYSTITIS CHRONIC [None]
  - ABDOMINAL PAIN [None]
  - GALLBLADDER PAIN [None]
  - BILE DUCT STONE [None]
  - GALLBLADDER DISORDER [None]
  - OCULAR ICTERUS [None]
  - PAIN [None]
  - CHOLANGITIS [None]
  - ABDOMINAL PAIN UPPER [None]
